FAERS Safety Report 25074185 (Version 1)
Quarter: 2025Q1

REPORT INFORMATION
  Report Type: Spontaneous
  Country: SA (occurrence: SA)
  Receive Date: 20250313
  Receipt Date: 20250313
  Transmission Date: 20250409
  Serious: Yes (Hospitalization)
  Sender: RANBAXY
  Company Number: SA-SUN PHARMACEUTICAL INDUSTRIES LTD-2025R1-498453

PATIENT
  Age: 59 Year
  Sex: Female

DRUGS (1)
  1. ACETAMINOPHEN [Suspect]
     Active Substance: ACETAMINOPHEN
     Indication: Pyrexia
     Route: 065

REACTIONS (1)
  - Therapy non-responder [Unknown]
